FAERS Safety Report 10884788 (Version 1)
Quarter: 2015Q1

REPORT INFORMATION
  Report Type: Report from Study
  Country: US (occurrence: US)
  Receive Date: 20150304
  Receipt Date: 20150304
  Transmission Date: 20150721
  Serious: Yes (Other)
  Sender: FDA-Public Use
  Company Number: US-SA-2015SA025678

PATIENT
  Sex: Male

DRUGS (13)
  1. ZOCOR [Concomitant]
     Active Substance: SIMVASTATIN
  2. COREG [Concomitant]
     Active Substance: CARVEDILOL
  3. XANAX [Concomitant]
     Active Substance: ALPRAZOLAM
  4. FLOMAX [Concomitant]
     Active Substance: TAMSULOSIN HYDROCHLORIDE
  5. LASIX [Concomitant]
     Active Substance: FUROSEMIDE
  6. ZESTRIL [Concomitant]
     Active Substance: LISINOPRIL
  7. FENOFIBRATE. [Concomitant]
     Active Substance: FENOFIBRATE
  8. LEVEMIR [Concomitant]
     Active Substance: INSULIN DETEMIR
  9. APIDRA [Suspect]
     Active Substance: INSULIN GLULISINE
     Indication: DIABETES MELLITUS
     Route: 065
  10. DITROPAN [Concomitant]
     Active Substance: OXYBUTYNIN CHLORIDE
  11. AMARYL [Concomitant]
     Active Substance: GLIMEPIRIDE
     Indication: DIABETES MELLITUS
  12. CELEXA [Concomitant]
     Active Substance: CITALOPRAM HYDROBROMIDE
  13. PLAVIX [Concomitant]
     Active Substance: CLOPIDOGREL BISULFATE

REACTIONS (1)
  - Cardiac disorder [Unknown]
